FAERS Safety Report 7212762-9 (Version None)
Quarter: 2010Q4

REPORT INFORMATION
  Report Type: 
  Country: None (occurrence: None)
  Receive Date: 20101229
  Receipt Date: 20101214
  Transmission Date: 20110411
  Serious: Yes (Hospitalization)
  Sender: FDA-Public Use
  Company Number: AUR-APL-2010-03222

PATIENT
  Sex: Male
  Weight: 70 kg

DRUGS (1)
  1. SIMVASTATIN [Suspect]
     Indication: HYPERCHOLESTEROLAEMIA
     Dosage: 40MG-DAILY-ORAL
     Route: 048
     Dates: start: 20081201, end: 20091101

REACTIONS (7)
  - ABSCESS LIMB [None]
  - AUTOIMMUNE DISORDER [None]
  - DECREASED APPETITE [None]
  - DERMATITIS [None]
  - SKIN EXFOLIATION [None]
  - SKIN NECROSIS [None]
  - VASCULITIS [None]
